FAERS Safety Report 7893146-7 (Version None)
Quarter: 2011Q4

REPORT INFORMATION
  Report Type: 
  Country: None (occurrence: None)
  Receive Date: 20111104
  Receipt Date: 20091124
  Transmission Date: 20120403
  Serious: Yes (Other)
  Sender: FDA-Public Use
  Company Number: JP-NOVOPROD-300606

PATIENT

DRUGS (5)
  1. NORDITROPIN NORDIFLEX [Suspect]
     Indication: GROWTH HORMONE DEFICIENCY
     Dosage: 0,4-0.5 MG, QD
     Route: 058
     Dates: start: 20070901
  2. NORDITROPIN NORDIFLEX [Suspect]
     Dosage: 0.7 MG, QD
     Route: 058
     Dates: start: 20110730
  3. CORTRIL                            /00028601/ [Concomitant]
     Dosage: 14 MG, QD
     Route: 048
     Dates: start: 20050825
  4. DESMOPRESSIN [Concomitant]
     Dosage: 10 MCG, QD
     Route: 045
     Dates: start: 20050818
  5. LEVOTHYROXINE SODIUM [Concomitant]
     Dosage: 50-65 MCG, QD
     Route: 048
     Dates: start: 20071101

REACTIONS (1)
  - CRANIOPHARYNGIOMA [None]
